FAERS Safety Report 4931764-6 (Version None)
Quarter: 2006Q1

REPORT INFORMATION
  Report Type: 
  Country: None (occurrence: None)
  Receive Date: 20060303
  Receipt Date: 20060217
  Transmission Date: 20060701
  Serious: Yes (Other)
  Sender: FDA-Public Use
  Company Number: PHEH2006US02296

PATIENT
  Age: 72 Year
  Sex: Female

DRUGS (2)
  1. DIOVAN [Suspect]
     Indication: HYPERTENSION
     Dosage: 40 MG, QD
     Route: 048
     Dates: start: 20051230
  2. LEVAQUIN [Suspect]
     Indication: CYSTITIS
     Dates: start: 20060214, end: 20060215

REACTIONS (4)
  - CONDITION AGGRAVATED [None]
  - CYSTITIS [None]
  - ERYTHEMA [None]
  - SUPRAVENTRICULAR EXTRASYSTOLES [None]
